FAERS Safety Report 9437170 (Version 2)
Quarter: 2013Q3

REPORT INFORMATION
  Report Type: Spontaneous
  Country: IT (occurrence: IT)
  Receive Date: 20130802
  Receipt Date: 20130913
  Transmission Date: 20140515
  Serious: Yes (Hospitalization)
  Sender: FDA-Public Use
  Company Number: IT-RANBAXY-2013R1-71628

PATIENT
  Age: 60 Year
  Sex: Male

DRUGS (2)
  1. PARACETAMOL [Suspect]
     Indication: PYREXIA
     Dosage: 1000 MG, DAILY
     Route: 048
     Dates: start: 20130308, end: 20130312
  2. RITUXIMAB [Suspect]
     Indication: NON-HODGKIN^S LYMPHOMA
     Dosage: 100 MG, 3 MONTHLY
     Route: 042
     Dates: start: 20110201, end: 20130312

REACTIONS (1)
  - Hepatitis B [Recovering/Resolving]
